FAERS Safety Report 5264086-7 (Version None)
Quarter: 2007Q1

REPORT INFORMATION
  Report Type: 
  Country: None (occurrence: None)
  Receive Date: 20070313
  Receipt Date: 20070301
  Transmission Date: 20070707
  Serious: Yes (Other)
  Sender: FDA-Public Use
  Company Number: JP-PFIZER INC-2007006162

PATIENT
  Age: 62 Year
  Sex: Male

DRUGS (5)
  1. AZULFIDINE EN-TABS [Suspect]
     Indication: RHEUMATOID ARTHRITIS
     Dosage: DAILY DOSE:1000MG
     Route: 048
  2. PAPAVERIN [Suspect]
     Indication: NASOPHARYNGITIS
  3. ALL OTHER THERAPEUTIC PRODUCTS [Suspect]
     Indication: NASOPHARYNGITIS
  4. ANTI-DIABETICS [Concomitant]
  5. NSAID'S [Concomitant]

REACTIONS (3)
  - ASTHENIA [None]
  - HYPERTENSION [None]
  - TACHYCARDIA [None]
